FAERS Safety Report 5750187-3 (Version None)
Quarter: 2008Q2

REPORT INFORMATION
  Report Type: 
  Country: None (occurrence: None)
  Receive Date: 20080527
  Receipt Date: 20080515
  Transmission Date: 20081010
  Serious: Yes (Other)
  Sender: FDA-Public Use
  Company Number: US-PFIZER INC-2008042601

PATIENT
  Sex: Female
  Weight: 63.1 kg

DRUGS (13)
  1. LYRICA [Suspect]
     Indication: RHEUMATOID ARTHRITIS
     Dates: start: 20060301, end: 20070101
  2. NEURONTIN [Suspect]
     Indication: RHEUMATOID ARTHRITIS
     Dates: start: 20070101, end: 20070101
  3. DEPAKOTE [Suspect]
     Indication: HEADACHE
     Dates: start: 20070101, end: 20070101
  4. TOPROL-XL [Concomitant]
  5. FOLIC ACID [Concomitant]
  6. VALSARTAN [Concomitant]
  7. IBUPROFEN [Concomitant]
  8. PREDNISONE TAB [Concomitant]
     Route: 047
  9. PREDNISONE TAB [Concomitant]
  10. SKELAXIN [Concomitant]
  11. ACIPHEX [Concomitant]
  12. ANALGESICS [Concomitant]
  13. SULAR [Concomitant]
     Indication: HYPERTENSION

REACTIONS (7)
  - BLOOD PRESSURE INCREASED [None]
  - CARPAL TUNNEL SYNDROME [None]
  - GAIT DISTURBANCE [None]
  - JOINT STIFFNESS [None]
  - LYMPHADENOPATHY [None]
  - MOBILITY DECREASED [None]
  - VISUAL ACUITY REDUCED [None]
